FAERS Safety Report 16483510 (Version 2)
Quarter: 2019Q4

REPORT INFORMATION
  Report Type: Spontaneous
  Country: US (occurrence: US)
  Receive Date: 20190627
  Receipt Date: 20191014
  Transmission Date: 20200122
  Serious: No
  Sender: FDA-Public Use
  Company Number: US-PFIZER INC-2019275449

PATIENT
  Age: 59 Year
  Sex: Female
  Weight: 55.33 kg

DRUGS (4)
  1. CYTOMEL [Suspect]
     Active Substance: LIOTHYRONINE SODIUM
     Indication: HYPOTHYROIDISM
     Dosage: 7.5 UG, DAILY (1 1/2 5MCG TABLETS DAILY; TOTAL OF 7.5 MCG)
     Route: 048
     Dates: start: 1999
  2. CYTOMEL [Suspect]
     Active Substance: LIOTHYRONINE SODIUM
     Dosage: UNK
  3. SYNTHROID [Suspect]
     Active Substance: LEVOTHYROXINE SODIUM
     Indication: HYPOTHYROIDISM
     Dosage: 0.125 MG,  UNK (1 PILL DAILY AND EVERY THIRD DAY, 1 1/4 PILL)
     Route: 048
     Dates: start: 1968
  4. CYTOMEL [Suspect]
     Active Substance: LIOTHYRONINE SODIUM
     Dosage: UNK

REACTIONS (4)
  - Poor quality product administered [Unknown]
  - Abdominal distension [Unknown]
  - Product quality issue [Unknown]
  - Osteoporosis [Unknown]

NARRATIVE: CASE EVENT DATE: 2014
